FAERS Safety Report 17871737 (Version 1)
Quarter: 2020Q2

REPORT INFORMATION
  Report Type: Other
  Country: CA (occurrence: CA)
  Receive Date: 20200608
  Receipt Date: 20200608
  Transmission Date: 20200714
  Serious: Yes (Death, Other)
  Sender: FDA-Public Use
  Company Number: CA-ADIENNEP-2020AD000330

PATIENT

DRUGS (2)
  1. THIOTEPA. [Suspect]
     Active Substance: THIOTEPA
     Indication: MEDULLOBLASTOMA
     Dosage: 10 MG/KG DAILY
     Route: 042
  2. CARBOPLATIN. [Suspect]
     Active Substance: CARBOPLATIN
     Indication: MEDULLOBLASTOMA
     Dosage: 17 MG/KG DAILY
     Route: 042

REACTIONS (4)
  - Respiratory failure [Fatal]
  - Off label use [Fatal]
  - Product use in unapproved indication [Fatal]
  - Pulmonary hypertension [Fatal]
